FAERS Safety Report 5315666-1 (Version None)
Quarter: 2007Q2

REPORT INFORMATION
  Report Type: 
  Country: None (occurrence: None)
  Receive Date: 20070503
  Receipt Date: 20070426
  Transmission Date: 20071010
  Serious: Yes (Other)
  Sender: FDA-Public Use
  Company Number: US-GILEAD-2007-0011971

PATIENT
  Sex: Male

DRUGS (1)
  1. ATRIPLA [Suspect]
     Dates: start: 20060701

REACTIONS (3)
  - ABDOMINAL DISTENSION [None]
  - DECREASED APPETITE [None]
  - WEIGHT DECREASED [None]
